FAERS Safety Report 6818566-0 (Version None)
Quarter: 2010Q2

REPORT INFORMATION
  Report Type: 
  Country: None (occurrence: None)
  Receive Date: 20100630
  Receipt Date: 20100617
  Transmission Date: 20101027
  Serious: Yes (Hospitalization)
  Sender: FDA-Public Use
  Company Number: 1000014784

PATIENT
  Age: 59 Year
  Sex: Female

DRUGS (2)
  1. ESCITALOPRAM [Suspect]
     Indication: DEPRESSION
     Dosage: 10 MG (10 MG, 1 IN 1 D)
  2. XANAX [Concomitant]

REACTIONS (3)
  - ANXIETY [None]
  - EXTRASYSTOLES [None]
  - TACHYCARDIA [None]
